FAERS Safety Report 23681378 (Version 1)
Quarter: 2024Q1

REPORT INFORMATION
  Report Type: Spontaneous
  Country: FR (occurrence: FR)
  Receive Date: 20240328
  Receipt Date: 20240328
  Transmission Date: 20240410
  Serious: Yes (Hospitalization, Other)
  Sender: FDA-Public Use
  Company Number: FR-AFSSAPS-PB2024000282

PATIENT
  Age: 34 Year
  Sex: Female

DRUGS (1)
  1. ACETAMINOPHEN [Suspect]
     Active Substance: ACETAMINOPHEN
     Indication: Product used for unknown indication
     Dosage: UNK
     Route: 048
     Dates: start: 20240305

REACTIONS (3)
  - Poisoning deliberate [Recovered/Resolved]
  - Hypokalaemia [Recovered/Resolved]
  - Coagulation factor decreased [Recovering/Resolving]

NARRATIVE: CASE EVENT DATE: 20240306
